FAERS Safety Report 18222236 (Version 1)
Quarter: 2020Q3

REPORT INFORMATION
  Report Type: Spontaneous
  Country: US (occurrence: US)
  Receive Date: 20200902
  Receipt Date: 20200902
  Transmission Date: 20201103
  Serious: Yes (Hospitalization, Disabling)
  Sender: FDA-Public Use
  Company Number: None

PATIENT
  Age: 48 Year
  Sex: Female
  Weight: 51.75 kg

DRUGS (7)
  1. EMERGEN?C [Concomitant]
     Active Substance: VITAMINS
  2. HRT [Concomitant]
     Active Substance: UNSPECIFIED INGREDIENT
  3. CBD OIL [Concomitant]
     Active Substance: CANNABIDIOL\HERBALS
  4. BIOLDENTIAL [Concomitant]
  5. TRAZODONE [Suspect]
     Active Substance: TRAZODONE HYDROCHLORIDE
     Indication: INSOMNIA
     Route: 048
     Dates: start: 20060101, end: 20200601
  6. ZINC. [Concomitant]
     Active Substance: ZINC
  7. CAL/MAG [Concomitant]

REACTIONS (5)
  - Proctalgia [None]
  - Levator syndrome [None]
  - Constipation [None]
  - Abdominal pain [None]
  - Anorectal discomfort [None]

NARRATIVE: CASE EVENT DATE: 20150907
